FAERS Safety Report 5737382-4 (Version None)
Quarter: 2008Q2

REPORT INFORMATION
  Report Type: 
  Country: None (occurrence: None)
  Receive Date: 20080514
  Receipt Date: 20080214
  Transmission Date: 20081010
  Serious: Yes (Other)
  Sender: FDA-Public Use
  Company Number: US-BRISTOL-MYERS SQUIBB COMPANY-14051940

PATIENT
  Age: 60 Year
  Sex: Female

DRUGS (4)
  1. IXEMPRA KIT [Suspect]
     Indication: BREAST CANCER METASTATIC
     Dosage: 250ML OVER 3 HRS
     Route: 042
     Dates: start: 20080103, end: 20080103
  2. XELODA [Suspect]
  3. LEXAPRO [Concomitant]
  4. NEXIUM [Concomitant]

REACTIONS (7)
  - DEHYDRATION [None]
  - HYPOKALAEMIA [None]
  - MUCOSAL INFLAMMATION [None]
  - PAIN IN EXTREMITY [None]
  - SKIN DISCOLOURATION [None]
  - SKIN EXFOLIATION [None]
  - STOMATITIS [None]
